FAERS Safety Report 11857898 (Version 1)
Quarter: 2015Q4

REPORT INFORMATION
  Report Type: Spontaneous
  Country: NL (occurrence: NL)
  Receive Date: 20151222
  Receipt Date: 20151222
  Transmission Date: 20160305
  Serious: Yes (Other)
  Sender: FDA-Public Use
  Company Number: NL-009507513-1509NLD009437

PATIENT
  Sex: Male
  Weight: 70 kg

DRUGS (3)
  1. ISENTRESS [Suspect]
     Active Substance: RALTEGRAVIR POTASSIUM
     Indication: HIV INFECTION
     Dosage: UNK, BID
     Route: 048
     Dates: start: 20081006
  2. PREZISTA [Concomitant]
     Active Substance: DARUNAVIR ETHANOLATE
     Indication: HIV INFECTION
     Dosage: UNK, BID
     Route: 048
     Dates: start: 20140723
  3. NORVIR [Concomitant]
     Active Substance: RITONAVIR
     Indication: HIV INFECTION
     Dosage: UNK, BID
     Route: 048
     Dates: start: 20140723

REACTIONS (9)
  - Adverse event [Not Recovered/Not Resolved]
  - Elderly [Not Recovered/Not Resolved]
  - Prostate cancer [Not Recovered/Not Resolved]
  - Neuralgia [Not Recovered/Not Resolved]
  - Osteoarthritis [Not Recovered/Not Resolved]
  - Blood cholesterol increased [Not Recovered/Not Resolved]
  - Somatisation disorder [Not Recovered/Not Resolved]
  - Diarrhoea [Not Recovered/Not Resolved]
  - Skin papilloma [Not Recovered/Not Resolved]

NARRATIVE: CASE EVENT DATE: 2015
